FAERS Safety Report 8896544 (Version 4)
Quarter: 2013Q4

REPORT INFORMATION
  Report Type: Spontaneous
  Country: US (occurrence: None)
  Receive Date: 20121102
  Receipt Date: 20131022
  Transmission Date: 20140711
  Serious: Yes (Hospitalization, Other)
  Sender: FDA-Public Use
  Company Number: JPI-P-025863

PATIENT
  Age: 46 Year
  Sex: Female
  Weight: 86.4 kg

DRUGS (1)
  1. XYREM (500 MILLIGRAM/MILLILITERS, SOLUTION) (SODIUM OXYBATE) [Suspect]
     Indication: NARCOLEPSY
     Route: 048
     Dates: start: 20100721

REACTIONS (5)
  - Breast cancer female [None]
  - Insomnia [None]
  - Feeling jittery [None]
  - Breast reconstruction [None]
  - Mastectomy [None]
